FAERS Safety Report 19771347 (Version 2)
Quarter: 2021Q3

REPORT INFORMATION
  Report Type: Spontaneous
  Country: US (occurrence: US)
  Receive Date: 20210831
  Receipt Date: 20210831
  Transmission Date: 20211014
  Serious: Yes (Other)
  Sender: FDA-Public Use
  Company Number: US-PFIZER INC-202101080395

PATIENT
  Age: 81 Year
  Sex: Male

DRUGS (1)
  1. VYNDAMAX [Suspect]
     Active Substance: TAFAMIDIS
     Dosage: 61 MG

REACTIONS (12)
  - Dizziness [Unknown]
  - Erectile dysfunction [Unknown]
  - Sinus congestion [Unknown]
  - Peripheral swelling [Unknown]
  - Productive cough [Unknown]
  - Diarrhoea [Unknown]
  - Pollakiuria [Unknown]
  - Somnolence [Unknown]
  - Haemorrhagic diathesis [Unknown]
  - Dyspnoea [Unknown]
  - Increased tendency to bruise [Unknown]
  - Fatigue [Unknown]
